FAERS Safety Report 8395960-0 (Version None)
Quarter: 2012Q2

REPORT INFORMATION
  Report Type: 
  Country: None (occurrence: None)
  Receive Date: 20120530
  Receipt Date: 20120525
  Transmission Date: 20120825
  Serious: Yes (Other)
  Sender: FDA-Public Use
  Company Number: US-AMGEN-USASP2010009721

PATIENT
  Age: 55 Year
  Sex: Female
  Weight: 93.424 kg

DRUGS (22)
  1. LAMISIL                            /00992602/ [Concomitant]
     Dosage: 250 MG, UNK
     Route: 048
  2. CALCITRIOL [Concomitant]
     Dosage: 0.5 MUG, UNK
     Route: 048
  3. DEXLANSOPRAZOLE [Concomitant]
     Route: 048
  4. TRAMADOL HCL [Concomitant]
     Dosage: 50 MG, UNK
  5. ATENOLOL [Concomitant]
     Dosage: 25 MG, UNK
  6. TEMAZEPAM [Concomitant]
     Dosage: 15 MG, UNK
  7. FAMOTIDINE [Concomitant]
     Dosage: 20 MG, BID
  8. ENBREL [Suspect]
     Indication: RHEUMATOID ARTHRITIS
     Dosage: 50 MG, QWK
     Route: 058
     Dates: start: 20101202, end: 20101209
  9. SIMVASTATIN [Concomitant]
     Dosage: 20 MG, UNK
  10. EPIPEN                             /00003901/ [Concomitant]
     Dosage: UNK
  11. FLONASE [Concomitant]
     Dosage: 50 MUG, UNK
  12. PERCOCET [Concomitant]
     Dosage: 325 MG, UNK
  13. GABAPENTIN [Concomitant]
     Dosage: 600 MG, TID
  14. CETIRIZINE HYDROCHLORIDE [Concomitant]
     Dosage: 10 MG, UNK
  15. ZOMIG-ZMT [Concomitant]
     Dosage: 2.5 MG, UNK
  16. ENBREL [Suspect]
     Dosage: UNK UNK, QWK
  17. FIORICET [Concomitant]
  18. LEVOXYL [Concomitant]
     Dosage: 125 MUG, UNK
  19. PREMARIN [Concomitant]
     Dosage: 0.3 MG, UNK
  20. SOMA [Concomitant]
     Dosage: 350 MG, UNK
  21. DIOVAN [Concomitant]
     Dosage: 80 MG, UNK
  22. SINGULAIR                          /01362602/ [Concomitant]
     Dosage: 10 MG, QD

REACTIONS (16)
  - COUGH [None]
  - PAPULE [None]
  - ACUTE FEBRILE NEUTROPHILIC DERMATOSIS [None]
  - RASH ERYTHEMATOUS [None]
  - RASH MORBILLIFORM [None]
  - PSORIASIS [None]
  - RHINORRHOEA [None]
  - MACULE [None]
  - RASH PRURITIC [None]
  - LUPUS-LIKE SYNDROME [None]
  - EXFOLIATIVE RASH [None]
  - DRUG ERUPTION [None]
  - EYE PRURITUS [None]
  - URTICARIA [None]
  - DRUG HYPERSENSITIVITY [None]
  - PHOTODERMATOSIS [None]
